FAERS Safety Report 9236247 (Version 1)
Quarter: 2013Q2

REPORT INFORMATION
  Report Type: Spontaneous
  Country: US (occurrence: US)
  Receive Date: 20130417
  Receipt Date: 20130417
  Transmission Date: 20140414
  Serious: No
  Sender: FDA-Public Use
  Company Number: US-GLAXOSMITHKLINE-A0992165A

PATIENT
  Age: 13 Year
  Sex: Female

DRUGS (1)
  1. LUXIQ [Suspect]
     Indication: SKIN DISORDER
     Route: 061
     Dates: start: 2012, end: 2012

REACTIONS (1)
  - Application site pain [Unknown]
